FAERS Safety Report 9747549 (Version 4)
Quarter: 2015Q1

REPORT INFORMATION
  Report Type: Spontaneous
  Country: US (occurrence: None)
  Receive Date: 20131206
  Receipt Date: 20150127
  Transmission Date: 20150721
  Serious: Yes (Hospitalization, Other)
  Sender: FDA-Public Use
  Company Number: 2013-US-003860

PATIENT
  Age: 83 Year
  Sex: Male

DRUGS (1)
  1. XYREM [Suspect]
     Active Substance: SODIUM OXYBATE
     Indication: SLEEP DISORDER
     Route: 048
     Dates: start: 200604

REACTIONS (5)
  - Acute leukaemia [None]
  - Haemoglobin decreased [None]
  - Cardiac failure congestive [None]
  - Off label use [None]
  - Malaise [None]

NARRATIVE: CASE EVENT DATE: 2013
